FAERS Safety Report 5359651-2 (Version None)
Quarter: 2007Q2

REPORT INFORMATION
  Report Type: 
  Country: None (occurrence: None)
  Receive Date: 20070530
  Receipt Date: 20070320
  Transmission Date: 20071010
  Serious: No
  Sender: FDA-Public Use
  Company Number: 2007PV032038

PATIENT
  Age: 51 Year
  Sex: Female
  Weight: 81.4207 kg

DRUGS (3)
  1. BYETTA [Suspect]
     Indication: DIABETES MELLITUS NON-INSULIN-DEPENDENT
     Dosage: SEE IMAGE
     Route: 058
     Dates: start: 20070128, end: 20070301
  2. BYETTA [Suspect]
     Indication: DIABETES MELLITUS NON-INSULIN-DEPENDENT
     Dosage: SEE IMAGE
     Route: 058
     Dates: start: 20070303
  3. GLUCOPHAGE [Concomitant]

REACTIONS (7)
  - ABDOMINAL PAIN UPPER [None]
  - HYPOAESTHESIA [None]
  - INCORRECT DOSE ADMINISTERED [None]
  - NAUSEA [None]
  - OCULAR HYPERAEMIA [None]
  - VOMITING [None]
  - WEIGHT DECREASED [None]
